FAERS Safety Report 20060623 (Version 3)
Quarter: 2022Q1

REPORT INFORMATION
  Report Type: Report from Study
  Country: NO (occurrence: NO)
  Receive Date: 20211112
  Receipt Date: 20220122
  Transmission Date: 20220423
  Serious: Yes (Hospitalization, Other)
  Sender: FDA-Public Use
  Company Number: NO-TAKEDA-2021TUS068024

PATIENT
  Age: 6 Year
  Sex: Female

DRUGS (17)
  1. TEDUGLUTIDE [Suspect]
     Active Substance: TEDUGLUTIDE
     Indication: Short-bowel syndrome
     Dosage: 0.500 MILLIGRAM, 1/WEEK
     Route: 065
     Dates: start: 20170208, end: 20170925
  2. TEDUGLUTIDE [Suspect]
     Active Substance: TEDUGLUTIDE
     Indication: Short-bowel syndrome
     Dosage: 0.500 MILLIGRAM, 1/WEEK
     Route: 065
     Dates: start: 20170208, end: 20170925
  3. TEDUGLUTIDE [Suspect]
     Active Substance: TEDUGLUTIDE
     Indication: Short-bowel syndrome
     Dosage: 0.500 MILLIGRAM, 1/WEEK
     Route: 065
     Dates: start: 20170208, end: 20170925
  4. TEDUGLUTIDE [Suspect]
     Active Substance: TEDUGLUTIDE
     Indication: Short-bowel syndrome
     Dosage: 0.500 MILLIGRAM, 1/WEEK
     Route: 065
     Dates: start: 20170208, end: 20170925
  5. TEDUGLUTIDE [Suspect]
     Active Substance: TEDUGLUTIDE
     Dosage: 0.500 MILLIGRAM, 1/WEEK
     Route: 065
     Dates: start: 20180106, end: 20190916
  6. TEDUGLUTIDE [Suspect]
     Active Substance: TEDUGLUTIDE
     Dosage: 0.500 MILLIGRAM, 1/WEEK
     Route: 065
     Dates: start: 20180106, end: 20190916
  7. TEDUGLUTIDE [Suspect]
     Active Substance: TEDUGLUTIDE
     Dosage: 0.500 MILLIGRAM, 1/WEEK
     Route: 065
     Dates: start: 20180106, end: 20190916
  8. TEDUGLUTIDE [Suspect]
     Active Substance: TEDUGLUTIDE
     Dosage: 0.500 MILLIGRAM, 1/WEEK
     Route: 065
     Dates: start: 20180106, end: 20190916
  9. TEDUGLUTIDE [Suspect]
     Active Substance: TEDUGLUTIDE
     Dosage: 0.750 MILLIGRAM, 1/WEEK
     Route: 065
     Dates: start: 20190917
  10. TEDUGLUTIDE [Suspect]
     Active Substance: TEDUGLUTIDE
     Dosage: 0.750 MILLIGRAM, 1/WEEK
     Route: 065
     Dates: start: 20190917
  11. TEDUGLUTIDE [Suspect]
     Active Substance: TEDUGLUTIDE
     Dosage: 0.750 MILLIGRAM, 1/WEEK
     Route: 065
     Dates: start: 20190917
  12. TEDUGLUTIDE [Suspect]
     Active Substance: TEDUGLUTIDE
     Dosage: 0.750 MILLIGRAM, 1/WEEK
     Route: 065
     Dates: start: 20190917
  13. VANCOMYCIN [Concomitant]
     Active Substance: VANCOMYCIN
     Indication: Vascular device infection
     Dosage: 360 MILLIGRAM, BID
     Route: 042
     Dates: start: 20200915, end: 20200923
  14. CLOXACILLIN [Concomitant]
     Active Substance: CLOXACILLIN
     Indication: Vascular device infection
     Dosage: 400 MILLIGRAM, QD
     Route: 042
     Dates: start: 20200909, end: 20210915
  15. LEVOTHYROXINE SODIUM [Concomitant]
     Active Substance: LEVOTHYROXINE SODIUM
     Indication: Hypothyroidism
     Dosage: 25 MICROGRAM, QD
     Route: 048
     Dates: start: 20210630
  16. ESOMEPRAZOLE [Concomitant]
     Active Substance: ESOMEPRAZOLE
     Indication: Gastric ulcer
     Dosage: 15 MILLIGRAM, BID
     Route: 048
     Dates: start: 20200213
  17. LEVOTHYROXINE [Concomitant]
     Active Substance: LEVOTHYROXINE
     Indication: Hypothyroidism
     Dosage: 37.50 MICROGRAM, QD
     Route: 048
     Dates: start: 20210630

REACTIONS (1)
  - Vascular device infection [Recovered/Resolved]

NARRATIVE: CASE EVENT DATE: 20200909
